FAERS Safety Report 6553096-5 (Version None)
Quarter: 2010Q1

REPORT INFORMATION
  Report Type: 
  Country: None (occurrence: None)
  Receive Date: 20100127
  Receipt Date: 20090424
  Transmission Date: 20100710
  Serious: No
  Sender: FDA-Public Use
  Company Number: A0763282A

PATIENT
  Age: 65 Year
  Sex: Male
  Weight: 61.4 kg

DRUGS (4)
  1. SUMATRIPTAN SUCCINATE [Suspect]
     Indication: MIGRAINE
     Dosage: 6MG AS REQUIRED
     Route: 058
     Dates: start: 20081101
  2. GSK AUTOINJECTOR [Suspect]
     Indication: MIGRAINE
  3. EXCEDRIN (MIGRAINE) [Concomitant]
     Indication: HEADACHE
  4. PHENERGAN HCL [Concomitant]
     Dosage: 25MG AS REQUIRED

REACTIONS (2)
  - INJECTION SITE PAIN [None]
  - PRODUCT QUALITY ISSUE [None]
